FAERS Safety Report 7637252-0 (Version None)
Quarter: 2011Q3

REPORT INFORMATION
  Report Type: 
  Country: None (occurrence: None)
  Receive Date: 20110726
  Receipt Date: 20110722
  Transmission Date: 20111222
  Serious: Yes (Life-Threatening)
  Sender: FDA-Public Use
  Company Number: JP-ASTRAZENECA-2011SE09457

PATIENT
  Age: 71 Year
  Sex: Male
  Weight: 61 kg

DRUGS (1)
  1. IRESSA [Suspect]
     Indication: LUNG ADENOCARCINOMA
     Route: 048
     Dates: start: 20110208, end: 20110213

REACTIONS (2)
  - DIABETES MELLITUS [None]
  - INTERSTITIAL LUNG DISEASE [None]
